FAERS Safety Report 10272117 (Version 1)
Quarter: 2014Q3

REPORT INFORMATION
  Report Type: Spontaneous
  Country: US (occurrence: US)
  Receive Date: 20140702
  Receipt Date: 20140702
  Transmission Date: 20150326
  Serious: No
  Sender: FDA-Public Use
  Company Number: US-009507513-1406USA009400

PATIENT
  Age: 18 Year
  Sex: Female

DRUGS (5)
  1. ISENTRESS [Suspect]
     Active Substance: RALTEGRAVIR POTASSIUM
     Dosage: TOTAL DAILY DOSE 800
     Route: 048
  2. SUSTIVA [Suspect]
     Active Substance: EFAVIRENZ
     Dosage: TOTAL DAILY DOSE 600
     Route: 048
  3. RITONAVIR [Suspect]
     Active Substance: RITONAVIR
     Dosage: TOTAL DAILY DOSE 100
     Route: 048
  4. EMTRICITABINE (+) TENOFOVIR DISOPROXIL FUMARATE [Suspect]
     Active Substance: EMTRICITABINE\TENOFOVIR DISOPROXIL
     Dosage: TOTAL DAILY DOSE 1.
     Route: 048
  5. DARUNAVIR [Suspect]
     Active Substance: DARUNAVIR
     Dosage: TOTAL DAILY DOSE 800
     Route: 048

REACTIONS (2)
  - No adverse event [Unknown]
  - Pregnancy [Recovered/Resolved]
